FAERS Safety Report 10404705 (Version 1)
Quarter: 2014Q3

REPORT INFORMATION
  Report Type: Spontaneous
  Country: US (occurrence: US)
  Receive Date: 20140824
  Receipt Date: 20140824
  Transmission Date: 20150326
  Serious: No
  Sender: FDA-Public Use
  Company Number: US-BAUSCH-SYM-2013-07302

PATIENT
  Sex: Female

DRUGS (1)
  1. ZOVIRAX [Suspect]
     Active Substance: ACYCLOVIR
     Indication: ORAL HERPES
     Dosage: EVERY 4 HOURS TOPICALLY
     Route: 061
     Dates: start: 20130318

REACTIONS (4)
  - Blister [Unknown]
  - Paraesthesia [Unknown]
  - Product quality issue [Unknown]
  - Drug ineffective [Unknown]
